FAERS Safety Report 9367216 (Version 1)
Quarter: 2013Q2

REPORT INFORMATION
  Report Type: Spontaneous
  Country: US (occurrence: US)
  Receive Date: 20130625
  Receipt Date: 20130625
  Transmission Date: 20140414
  Serious: No
  Sender: FDA-Public Use
  Company Number: US-ASTELLAS-2012US004226

PATIENT
  Age: 85 Year
  Sex: Female

DRUGS (2)
  1. VESICARE [Suspect]
     Indication: MICTURITION URGENCY
     Dosage: UNK MG, UNKNOWN/D
     Route: 048
     Dates: start: 20111228
  2. VESICARE [Suspect]
     Indication: URINARY INCONTINENCE
     Dosage: 5 MG, UNKNOWN/D
     Route: 048
     Dates: start: 20120608

REACTIONS (7)
  - Visual impairment [Not Recovered/Not Resolved]
  - Lower extremity mass [Not Recovered/Not Resolved]
  - Arthralgia [Unknown]
  - Pain in extremity [Recovered/Resolved]
  - Back pain [Not Recovered/Not Resolved]
  - Herpes zoster [Not Recovered/Not Resolved]
  - Local swelling [Recovering/Resolving]
